FAERS Safety Report 10394869 (Version 1)
Quarter: 2014Q3

REPORT INFORMATION
  Report Type: Spontaneous
  Country: US (occurrence: US)
  Receive Date: 20140820
  Receipt Date: 20140820
  Transmission Date: 20150326
  Serious: No
  Sender: FDA-Public Use
  Company Number: US-BIOGENIDEC-2014BI081294

PATIENT
  Age: 50 Year
  Sex: Female

DRUGS (1)
  1. TECFIDERA [Suspect]
     Active Substance: DIMETHYL FUMARATE
     Indication: MULTIPLE SCLEROSIS

REACTIONS (7)
  - Diarrhoea [Unknown]
  - Vomiting [Unknown]
  - Nausea [Unknown]
  - Burning sensation [Unknown]
  - Feeling hot [Unknown]
  - Feeling cold [Unknown]
  - Flushing [Unknown]

NARRATIVE: CASE EVENT DATE: 20140802
